FAERS Safety Report 9278612 (Version 1)
Quarter: 2013Q2

REPORT INFORMATION
  Report Type: Spontaneous
  Country: US (occurrence: None)
  Receive Date: 20130506
  Receipt Date: 20130506
  Transmission Date: 20140414
  Serious: No
  Sender: FDA-Public Use
  Company Number: None

PATIENT
  Age: 33 Year
  Sex: Male
  Weight: 85.28 kg

DRUGS (2)
  1. TRAZADONE [Suspect]
     Indication: DEPRESSION
     Dosage: QHS
     Route: 048
     Dates: start: 20130424, end: 20130428
  2. TRAZADONE [Suspect]
     Indication: INSOMNIA
     Dosage: QHS
     Route: 048
     Dates: start: 20130424, end: 20130428

REACTIONS (1)
  - Priapism [None]
